FAERS Safety Report 14794213 (Version 1)
Quarter: 2018Q2

REPORT INFORMATION
  Report Type: Spontaneous
  Country: GB (occurrence: GB)
  Receive Date: 20180423
  Receipt Date: 20180423
  Transmission Date: 20180711
  Serious: Yes (Other)
  Sender: FDA-Public Use
  Company Number: PHHY2018GB070629

PATIENT
  Age: 42 Year
  Sex: Female
  Weight: 36.32 kg

DRUGS (2)
  1. QUETIAPINE. [Suspect]
     Active Substance: QUETIAPINE
     Indication: BRIEF PSYCHOTIC DISORDER, WITH POSTPARTUM ONSET
     Dosage: 400 MG, QD (400 MILLIGRAM DAILY; 400 MG TAKEN AT NIGHT)
     Route: 065
     Dates: start: 201308
  2. QUETIAPINE. [Suspect]
     Active Substance: QUETIAPINE
     Indication: DEPRESSION

REACTIONS (14)
  - Depressed mood [Recovering/Resolving]
  - Agitation [Recovering/Resolving]
  - Photophobia [Recovering/Resolving]
  - Nausea [Recovering/Resolving]
  - Heart rate increased [Recovering/Resolving]
  - Headache [Recovering/Resolving]
  - Hypervigilance [Recovering/Resolving]
  - Nervousness [Recovering/Resolving]
  - Withdrawal syndrome [Recovering/Resolving]
  - Insomnia [Recovering/Resolving]
  - Hyperhidrosis [Recovering/Resolving]
  - Fatigue [Recovering/Resolving]
  - Anxiety [Recovering/Resolving]
  - Hyperacusis [Recovering/Resolving]

NARRATIVE: CASE EVENT DATE: 20180204
